FAERS Safety Report 8292700 (Version 2)
Quarter: 2014Q2

REPORT INFORMATION
  Report Type: Report from Study
  Country: TR (occurrence: TR)
  Receive Date: 20111215
  Receipt Date: 20140414
  Transmission Date: 20141212
  Serious: Yes (Other)
  Sender: FDA-Public Use
  Company Number: PHHO2011TR020624

PATIENT
  Age: 45 Year
  Sex: Female
  Weight: 63 kg

DRUGS (3)
  1. AFINITOR [Suspect]
     Indication: PANCREATIC NEUROENDOCRINE TUMOUR METASTATIC
     Dosage: 10 MG, UNK
     Route: 048
     Dates: end: 20111010
  2. AFINITOR [Suspect]
     Dosage: 10 MG, UNK
     Route: 048
     Dates: start: 20111105
  3. OCTREOTIDE [Concomitant]
     Dosage: 20 MG, UNK
     Dates: end: 20111006

REACTIONS (6)
  - Bronchospasm [Recovered/Resolved]
  - Dyspnoea [Unknown]
  - Wheezing [Unknown]
  - Face oedema [Recovered/Resolved]
  - Eye pruritus [Unknown]
  - Pruritus [Unknown]
